FAERS Safety Report 20218331 (Version 1)
Quarter: 2021Q4

REPORT INFORMATION
  Report Type: Report from Study
  Country: EG (occurrence: EG)
  Receive Date: 20211222
  Receipt Date: 20211222
  Transmission Date: 20220304
  Serious: Yes (Other)
  Sender: FDA-Public Use
  Company Number: EG-NOVARTISPH-NVSC2021EG290181

PATIENT
  Sex: Female

DRUGS (4)
  1. GILENYA [Suspect]
     Active Substance: FINGOLIMOD HYDROCHLORIDE
     Indication: Multiple sclerosis
     Dosage: 0.5 MG, QD
     Route: 048
     Dates: start: 2017
  2. PLETAL [Concomitant]
     Active Substance: CILOSTAZOL
     Indication: Antiplatelet therapy
     Dosage: 1 DOSAGE FORM, QD
     Route: 048
     Dates: start: 2017
  3. CINNARIZINE [Concomitant]
     Active Substance: CINNARIZINE
     Indication: Cerebral disorder
     Dosage: 2 DOSAGE FORM, QD
     Route: 048
     Dates: start: 2017
  4. OMEGA 3 PLUS [Concomitant]
     Indication: Vitamin supplementation
     Dosage: 1 DOSAGE FORM, QD
     Route: 048
     Dates: start: 2017

REACTIONS (4)
  - Immunodeficiency [Unknown]
  - Nerve injury [Recovered/Resolved]
  - Balance disorder [Recovered/Resolved]
  - Dizziness [Recovered/Resolved]

NARRATIVE: CASE EVENT DATE: 20180101
